FAERS Safety Report 7365558-1 (Version None)
Quarter: 2011Q1

REPORT INFORMATION
  Report Type: 
  Country: None (occurrence: None)
  Receive Date: 20110322
  Receipt Date: 20110309
  Transmission Date: 20110831
  Serious: Yes (Other)
  Sender: FDA-Public Use
  Company Number: US-BAYER-2011-011643

PATIENT
  Sex: Female

DRUGS (4)
  1. BETASERON [Suspect]
     Indication: SECONDARY PROGRESSIVE MULTIPLE SCLEROSIS
     Dosage: UNK
     Dates: start: 19990823, end: 20030601
  2. BETASERON [Suspect]
     Dosage: 8 MIU, QOD
     Route: 058
     Dates: start: 20080515
  3. TETANUS-VACCIN [TETANUS VACCINE] [Suspect]
     Indication: OTITIS EXTERNA
     Dates: start: 20100701, end: 20100701
  4. ALCOWIPES [Concomitant]

REACTIONS (5)
  - INJECTION SITE PUSTULE [None]
  - OTITIS EXTERNA [None]
  - INJECTION SITE ERYTHEMA [None]
  - INJECTION SITE INFECTION [None]
  - INJECTION SITE PAIN [None]
